FAERS Safety Report 4674169-8 (Version None)
Quarter: 2005Q2

REPORT INFORMATION
  Report Type: 
  Country: None (occurrence: None)
  Receive Date: 20050524
  Receipt Date: 20050524
  Transmission Date: 20051028
  Serious: No
  Sender: FDA-Public Use
  Company Number: None

PATIENT
  Sex: Female
  Weight: 104 kg

DRUGS (2)
  1. CYTOXAN [Suspect]
     Dosage: 600 MG/M2 EVERY 2 WEEKS
     Dates: start: 20050128
  2. ADRIAMYCIN PFS [Suspect]
     Dosage: 60 MG/M2 EVERY 2 WEEKS

REACTIONS (10)
  - CARDIAC FAILURE CONGESTIVE [None]
  - DYSPNOEA [None]
  - EJECTION FRACTION DECREASED [None]
  - ELECTROCARDIOGRAM T WAVE ABNORMAL [None]
  - MYOCARDIAL INFARCTION [None]
  - MYOCARDIAL ISCHAEMIA [None]
  - ORTHOPNOEA [None]
  - PAIN IN EXTREMITY [None]
  - REFUSAL OF TREATMENT BY PATIENT [None]
  - VENTRICULAR DYSFUNCTION [None]
